FAERS Safety Report 8381574 (Version 3)
Quarter: 2018Q4

REPORT INFORMATION
  Report Type: Spontaneous
  Country: US (occurrence: US)
  Receive Date: 20120131
  Receipt Date: 20181101
  Transmission Date: 20190205
  Serious: Yes (Other)
  Sender: FDA-Public Use
  Company Number: US-ASTRAZENECA-2012SE05226

PATIENT
  Age: 66 Year
  Sex: Female
  Weight: 83.9 kg

DRUGS (3)
  1. SYMBICORT [Suspect]
     Active Substance: BUDESONIDE\FORMOTEROL FUMARATE DIHYDRATE
     Indication: CHRONIC OBSTRUCTIVE PULMONARY DISEASE
     Dosage: 160/4.5 MCG, ONE INHALATION IN THE AM AND PM
     Route: 055
     Dates: start: 2010
  2. SYMBICORT [Suspect]
     Active Substance: BUDESONIDE\FORMOTEROL FUMARATE DIHYDRATE
     Indication: EMPHYSEMA
     Dosage: 160/4.5 MCG, ONE INHALATION IN THE AM AND PM
     Route: 055
     Dates: start: 2010
  3. SYMBICORT [Suspect]
     Active Substance: BUDESONIDE\FORMOTEROL FUMARATE DIHYDRATE
     Indication: LUNG DISORDER
     Dosage: 160/4.5 MCG, ONE INHALATION IN THE AM AND PM
     Route: 055
     Dates: start: 2010

REACTIONS (7)
  - Dyspnoea [Unknown]
  - Asthma [Unknown]
  - Back pain [Unknown]
  - Off label use [Unknown]
  - Intestinal mass [Unknown]
  - Spinal disorder [Unknown]
  - Pneumonia [Unknown]
